FAERS Safety Report 5201190-3 (Version None)
Quarter: 2007Q1

REPORT INFORMATION
  Report Type: 
  Country: None (occurrence: None)
  Receive Date: 20070103
  Receipt Date: 20061218
  Transmission Date: 20070707
  Serious: Yes (Hospitalization)
  Sender: FDA-Public Use
  Company Number: 15381

PATIENT
  Age: 30 Year
  Sex: Female

DRUGS (7)
  1. ACYCLOVIR [Suspect]
     Indication: HERPES ZOSTER
     Dosage: 200 MG QD
     Dates: start: 20060801, end: 20060805
  2. CLOZARIL [Suspect]
     Indication: SCHIZOPHRENIA
     Dosage: 250 MG PO
     Route: 048
     Dates: start: 20050124
  3. AMISULPRIDE [Concomitant]
  4. PIRENZEPINE [Concomitant]
  5. TOLTERODINE [Concomitant]
  6. TOPIRAMATE [Concomitant]
  7. VALPROATE SODIUM [Concomitant]

REACTIONS (4)
  - DRUG INTERACTION [None]
  - HALLUCINATIONS, MIXED [None]
  - HERPES ZOSTER [None]
  - MENTAL DISORDER [None]
